FAERS Safety Report 4500850-7 (Version None)
Quarter: 2004Q4

REPORT INFORMATION
  Report Type: 
  Country: None (occurrence: None)
  Receive Date: 20041115
  Receipt Date: 20041109
  Transmission Date: 20050328
  Serious: Yes (Other)
  Sender: FDA-Public Use
  Company Number: PHRM2004FR03332

PATIENT
  Age: 57 Year
  Sex: Female

DRUGS (4)
  1. LESCOL [Suspect]
     Indication: HYPERCHOLESTEROLAEMIA
     Route: 048
     Dates: start: 20040501, end: 20040819
  2. BISOPROLOL FUMARATE [Concomitant]
     Dosage: .5 DF, QD
     Dates: start: 19960101
  3. ESCLIM [Concomitant]
  4. DUPHASTON [Concomitant]
     Dosage: UNK, UNK

REACTIONS (4)
  - PAIN IN EXTREMITY [None]
  - TENDON DISORDER [None]
  - TENDON RUPTURE [None]
  - TENDONITIS [None]
